FAERS Safety Report 10901347 (Version 5)
Quarter: 2017Q2

REPORT INFORMATION
  Report Type: Spontaneous
  Country: NZ (occurrence: NZ)
  Receive Date: 20150310
  Receipt Date: 20170426
  Transmission Date: 20170829
  Serious: Yes (Disabling, Other)
  Sender: FDA-Public Use
  Company Number: NZ-009507513-1503NZL004115

PATIENT
  Age: 55 Year
  Sex: Male

DRUGS (2)
  1. ALENDRONATE SODIUM. [Suspect]
     Active Substance: ALENDRONATE SODIUM
     Indication: BONE DENSITY DECREASED
     Dosage: 70 MG, QOW (70 MG FORTNIGHTLY)
     Route: 048
  2. ALENDRONATE SODIUM. [Suspect]
     Active Substance: ALENDRONATE SODIUM
     Indication: FRACTURE
     Dosage: 70 MG, QW
     Route: 048

REACTIONS (2)
  - Osteomalacia [Recovering/Resolving]
  - Multiple fractures [Recovered/Resolved]

NARRATIVE: CASE EVENT DATE: 201005
